FAERS Safety Report 5530320-9 (Version None)
Quarter: 2007Q4

REPORT INFORMATION
  Report Type: 
  Country: None (occurrence: None)
  Receive Date: 20071130
  Receipt Date: 20070516
  Transmission Date: 20080405
  Serious: No
  Sender: FDA-Public Use
  Company Number: A0651605A

PATIENT
  Sex: Female

DRUGS (1)
  1. AUGMENTIN '250' [Suspect]
     Indication: INFECTION
     Route: 065

REACTIONS (1)
  - FATIGUE [None]
